FAERS Safety Report 14324188 (Version 1)
Quarter: 2017Q4

REPORT INFORMATION
  Report Type: Not Available
  Country: US (occurrence: US)
  Receive Date: 20171226
  Receipt Date: 20171226
  Transmission Date: 20180321
  Serious: No
  Sender: FDA-Public Use
  Company Number: US-NEUROCRINE BIOSCIENCES INC.-2017NBI01365

PATIENT
  Age: 23 Year
  Sex: Male

DRUGS (15)
  1. FLUOXETINE [Concomitant]
     Active Substance: FLUOXETINE HYDROCHLORIDE
  2. IRON [Concomitant]
     Active Substance: IRON
     Dosage: TAKE ON MWF
  3. STOOL SOFTENER (DOCUSATE) [Concomitant]
     Active Substance: DOCUSATE
     Dosage: TAKE ON MWF
  4. LEVOTHYROXINE. [Concomitant]
     Active Substance: LEVOTHYROXINE
  5. FOLIC ACID. [Concomitant]
     Active Substance: FOLIC ACID
  6. DIAZEPAM. [Concomitant]
     Active Substance: DIAZEPAM
  7. FISH OIL [Concomitant]
     Active Substance: FISH OIL
  8. VITAMIN E [Concomitant]
     Active Substance: .ALPHA.-TOCOPHEROL
  9. METFORMIN [Concomitant]
     Active Substance: METFORMIN HYDROCHLORIDE
  10. METOPROLOL. [Concomitant]
     Active Substance: METOPROLOL
  11. INGREZZA [Suspect]
     Active Substance: VALBENAZINE
     Indication: TARDIVE DYSKINESIA
     Route: 048
     Dates: start: 20171016, end: 20171022
  12. LISINOPRIL. [Concomitant]
     Active Substance: LISINOPRIL
  13. INGREZZA [Suspect]
     Active Substance: VALBENAZINE
     Route: 048
     Dates: start: 20171023
  14. TRAZODONE [Concomitant]
     Active Substance: TRAZODONE HYDROCHLORIDE
     Dosage: AT BEDTIME
  15. DIVALPROEX ER [Concomitant]
     Active Substance: DIVALPROEX SODIUM

REACTIONS (4)
  - Psychomotor hyperactivity [Not Recovered/Not Resolved]
  - Increased appetite [Not Recovered/Not Resolved]
  - Dyskinesia [Not Recovered/Not Resolved]
  - Sleep disorder [Not Recovered/Not Resolved]

NARRATIVE: CASE EVENT DATE: 201710
